FAERS Safety Report 24271667 (Version 1)
Quarter: 2024Q3

REPORT INFORMATION
  Report Type: Spontaneous
  Country: US (occurrence: US)
  Receive Date: 20240902
  Receipt Date: 20240902
  Transmission Date: 20241017
  Serious: Yes (Other)
  Sender: AMNEAL
  Company Number: US-AMNEAL PHARMACEUTICALS-2024-AMRX-03135

PATIENT
  Age: 58 Year
  Sex: Female

DRUGS (4)
  1. TRIAMCINOLONE ACETONIDE [Suspect]
     Active Substance: TRIAMCINOLONE ACETONIDE
     Indication: Alopecia areata
     Dosage: MONTHLY 9 CC, 2.5 MG/CC ACROSS THE SCALP
     Route: 026
  2. TRIAMCINOLONE ACETONIDE [Suspect]
     Active Substance: TRIAMCINOLONE ACETONIDE
     Dosage: 4 CC (PATIENT RECEIVED 7 TREATMENTS AT THE REDUCED DOSE)
     Route: 026
     Dates: start: 202210, end: 202307
  3. CLOBETASOL [Concomitant]
     Active Substance: CLOBETASOL
     Indication: Alopecia areata
     Dosage: 0.05 PERCENT
     Route: 061
  4. MINOXIDIL [Concomitant]
     Active Substance: MINOXIDIL
     Indication: Alopecia areata
     Dosage: 5 PERCENT
     Route: 061

REACTIONS (1)
  - Central serous chorioretinopathy [Recovering/Resolving]
